FAERS Safety Report 24690790 (Version 3)
Quarter: 2025Q2

REPORT INFORMATION
  Report Type: Spontaneous
  Country: US (occurrence: US)
  Receive Date: 20241203
  Receipt Date: 20250606
  Transmission Date: 20250717
  Serious: No
  Sender: NOVEN
  Company Number: US-NOVEN PHARMACEUTICALS, INC.-2024-NOV-US000026

PATIENT
  Age: 73 Year
  Sex: Female

DRUGS (2)
  1. ESTRADIOL [Suspect]
     Active Substance: ESTRADIOL
     Indication: Hormone replacement therapy
     Dosage: 0.05 MG, TWICE WEEKLY
     Route: 062
  2. ESTRADIOL [Suspect]
     Active Substance: ESTRADIOL
     Indication: Artificial menopause

REACTIONS (5)
  - Exposure via direct contact [Recovered/Resolved]
  - Product adhesion issue [Recovered/Resolved]
  - Device issue [Recovered/Resolved]
  - Product colour issue [Not Recovered/Not Resolved]
  - No adverse event [Unknown]

NARRATIVE: CASE EVENT DATE: 20240105
